FAERS Safety Report 4595965-1 (Version None)
Quarter: 2005Q1

REPORT INFORMATION
  Report Type: 
  Country: None (occurrence: None)
  Receive Date: 20050302
  Receipt Date: 20050218
  Transmission Date: 20050727
  Serious: Yes (Hospitalization, Other)
  Sender: FDA-Public Use
  Company Number: US-JNJFOC-20050206295

PATIENT
  Age: 45 Year
  Sex: Female

DRUGS (5)
  1. RISPERDAL [Suspect]
     Indication: AGITATION
     Route: 049
     Dates: start: 20050122, end: 20050213
  2. PAXIL CR [Concomitant]
     Indication: ANXIETY
     Route: 049
     Dates: start: 20040201, end: 20050213
  3. SULAR [Concomitant]
     Indication: HYPERTENSION
     Route: 049
  4. PRINZIDE [Concomitant]
     Route: 049
  5. PRINZIDE [Concomitant]
     Indication: HYPERTENSION
     Route: 049

REACTIONS (2)
  - COGNITIVE DISORDER [None]
  - RHABDOMYOLYSIS [None]
